FAERS Safety Report 21503119 (Version 1)
Quarter: 2022Q4

REPORT INFORMATION
  Report Type: Spontaneous
  Country: GB (occurrence: GB)
  Receive Date: 20221025
  Receipt Date: 20221025
  Transmission Date: 20230112
  Serious: Yes (Other)
  Sender: FDA-Public Use
  Company Number: GB-TAKEDA-2022TUS073932

PATIENT
  Age: 40 Year
  Sex: Female
  Weight: 53 kg

DRUGS (2)
  1. ALUNBRIG [Suspect]
     Active Substance: BRIGATINIB
     Indication: Product used for unknown indication
     Dosage: 90 MILLIGRAM, QD
     Route: 065
     Dates: start: 202109
  2. ALUNBRIG [Suspect]
     Active Substance: BRIGATINIB
     Dosage: 180 MILLIGRAM, QD
     Route: 065

REACTIONS (3)
  - Electrocardiogram QT prolonged [Unknown]
  - Blood creatine phosphokinase increased [Unknown]
  - Blood pressure increased [Unknown]
